FAERS Safety Report 8043705-6 (Version None)
Quarter: 2012Q1

REPORT INFORMATION
  Report Type: 
  Country: None (occurrence: None)
  Receive Date: 20120112
  Receipt Date: 20110902
  Transmission Date: 20120608
  Serious: Yes (Hospitalization, Other)
  Sender: FDA-Public Use
  Company Number: PHEH2011US03400

PATIENT
  Sex: Male
  Weight: 2.585 kg

DRUGS (2)
  1. TEGRETOL [Suspect]
     Indication: EPILEPSY
     Dosage: 900 MG, UNK
     Route: 064
     Dates: start: 20100207, end: 20101015
  2. TEGRETOL [Suspect]
     Dosage: 1100 MG, UNK
     Route: 064
     Dates: start: 20101015, end: 20101029

REACTIONS (3)
  - FEEDING DISORDER OF INFANCY OR EARLY CHILDHOOD [None]
  - INGUINAL HERNIA [None]
  - SPERMATIC CORD DISORDER [None]
